FAERS Safety Report 6674834-7 (Version None)
Quarter: 2010Q2

REPORT INFORMATION
  Report Type: 
  Country: None (occurrence: None)
  Receive Date: 20100409
  Receipt Date: 20100330
  Transmission Date: 20101027
  Serious: Yes (Other)
  Sender: FDA-Public Use
  Company Number: US-PFIZER INC-2010041600

PATIENT
  Sex: Female
  Weight: 76.2 kg

DRUGS (9)
  1. LYRICA [Suspect]
     Indication: BURNING SENSATION
     Dosage: FREQUENCY: 2X/DAY,
     Dates: start: 20080101, end: 20090101
  2. LYRICA [Suspect]
     Indication: TENDERNESS
     Dosage: 75 MG, 3X/DAY
     Dates: start: 20090101, end: 20091201
  3. XANAX [Suspect]
     Indication: ANXIETY
     Dosage: 1 MG, 3X/DAY
     Dates: start: 20090101, end: 20100101
  4. XANAX [Suspect]
     Dosage: 1 MG, 1X/DAY
     Dates: start: 20100101
  5. BENADRYL [Concomitant]
     Indication: HYPERSENSITIVITY
  6. COREG [Concomitant]
     Indication: CARDIAC DISORDER
     Dosage: UNK
  7. LISINOPRIL AND HYDROCHLOROTHIAZIDE [Concomitant]
     Indication: HYPERTENSION
     Dosage: UNK
  8. PREVACID [Concomitant]
     Indication: GASTRIC DISORDER
     Dosage: UNK
  9. AMBIEN [Concomitant]
     Indication: INSOMNIA
     Dosage: UNK

REACTIONS (19)
  - ANXIETY [None]
  - ASTHENIA [None]
  - BURNING SENSATION [None]
  - CONDITION AGGRAVATED [None]
  - DRUG DOSE OMISSION [None]
  - ECONOMIC PROBLEM [None]
  - FEELING ABNORMAL [None]
  - HYPERAESTHESIA [None]
  - MEMORY IMPAIRMENT [None]
  - MENTAL DISORDER [None]
  - NERVOUSNESS [None]
  - PANIC REACTION [None]
  - PRESYNCOPE [None]
  - SENSATION OF HEAVINESS [None]
  - SOMNOLENCE [None]
  - SPEECH DISORDER [None]
  - TREATMENT NONCOMPLIANCE [None]
  - VISION BLURRED [None]
  - WITHDRAWAL SYNDROME [None]
